FAERS Safety Report 6094034-1 (Version None)
Quarter: 2009Q1

REPORT INFORMATION
  Report Type: 
  Country: None (occurrence: None)
  Receive Date: 20090224
  Receipt Date: 20090224
  Transmission Date: 20090719
  Serious: Yes (Hospitalization)
  Sender: FDA-Public Use
  Company Number: None

PATIENT
  Sex: Female
  Weight: 76.36 kg

DRUGS (9)
  1. PREDNISONE [Suspect]
     Dosage: 5 MG TABLET 5 MG PREDNISONE 7.5 MG P.O. DAILY X 5 DAYS ORAL
     Route: 048
     Dates: start: 20090209, end: 20090223
  2. ACTONEL [Concomitant]
  3. CIPROFLOXACIN [Concomitant]
  4. MVI (MULTIVITIMINS) [Concomitant]
  5. NEURONTIN [Concomitant]
  6. TOPAMAX [Concomitant]
  7. TRAMADOL HCL [Concomitant]
  8. ZYPREXA [Concomitant]
  9. ZYRTEC [Concomitant]

REACTIONS (1)
  - MENTAL STATUS CHANGES [None]
